FAERS Safety Report 20091841 (Version 1)
Quarter: 2021Q4

REPORT INFORMATION
  Report Type: Spontaneous
  Country: US (occurrence: None)
  Receive Date: 20211119
  Receipt Date: 20211119
  Transmission Date: 20220303
  Serious: Yes (Life-Threatening)
  Sender: FDA-Public Use
  Company Number: None

PATIENT
  Age: 37 Year
  Sex: Female
  Weight: 76.5 kg

DRUGS (1)
  1. DROPERIDOL [Suspect]
     Active Substance: DROPERIDOL
     Indication: Nausea
     Dosage: FREQUENCY : ONCE;?
     Route: 040
     Dates: start: 20211109, end: 20211109

REACTIONS (2)
  - Ventricular tachycardia [None]
  - Torsade de pointes [None]

NARRATIVE: CASE EVENT DATE: 20211109
